FAERS Safety Report 22529444 (Version 3)
Quarter: 2023Q4

REPORT INFORMATION
  Report Type: Spontaneous
  Country: US (occurrence: US)
  Receive Date: 20230607
  Receipt Date: 20231129
  Transmission Date: 20240109
  Serious: No
  Sender: FDA-Public Use
  Company Number: US-ABBVIE-5278441

PATIENT
  Sex: Male

DRUGS (2)
  1. IMBRUVICA [Suspect]
     Active Substance: IBRUTINIB
     Indication: B-cell small lymphocytic lymphoma
     Dosage: DURATION TEXT: 6-7 YEARS
     Route: 048
     Dates: start: 201612
  2. IMBRUVICA [Suspect]
     Active Substance: IBRUTINIB
     Indication: B-cell small lymphocytic lymphoma
     Dosage: DURATION TEXT: 6-7 YEARS,70 MG CAP?TAKE 1 CAPSULE BY?MOUTH ONCE DAILY
     Route: 048
     Dates: start: 20230711

REACTIONS (2)
  - Illness [Unknown]
  - Adverse drug reaction [Unknown]
